FAERS Safety Report 10023828 (Version 1)
Quarter: 2014Q1

REPORT INFORMATION
  Report Type: Spontaneous
  Country: US (occurrence: US)
  Receive Date: 20140320
  Receipt Date: 20140320
  Transmission Date: 20141002
  Serious: Yes (Other)
  Sender: FDA-Public Use
  Company Number: US-SA-2014SA034041

PATIENT
  Sex: 0

DRUGS (2)
  1. ALLEGRA-D, 12 HR [Suspect]
     Route: 065
  2. ALLEGRA 24 HOUR [Suspect]
     Route: 065

REACTIONS (2)
  - Oesophageal injury [Unknown]
  - Dysphagia [Unknown]
